FAERS Safety Report 7429631-1 (Version None)
Quarter: 2011Q2

REPORT INFORMATION
  Report Type: 
  Country: None (occurrence: None)
  Receive Date: 20110421
  Receipt Date: 20110414
  Transmission Date: 20111010
  Serious: Yes (Death, Hospitalization)
  Sender: FDA-Public Use
  Company Number: B0714556A

PATIENT
  Age: 68 Year
  Sex: Male

DRUGS (5)
  1. SPIRIVA [Suspect]
     Route: 065
  2. SYMBICORT [Suspect]
     Dosage: 2U TWICE PER DAY
     Route: 065
  3. DOXYFERM [Suspect]
     Dosage: 100MG PER DAY
     Route: 065
  4. AMILOFERM [Suspect]
     Route: 065
  5. VENTOLIN DISKUS [Suspect]
     Dosage: .2MG AS REQUIRED
     Route: 065

REACTIONS (6)
  - STRESS CARDIOMYOPATHY [None]
  - CHRONIC OBSTRUCTIVE PULMONARY DISEASE [None]
  - DYSPNOEA [None]
  - HEMIPARESIS [None]
  - DEATH [None]
  - METASTASES TO CENTRAL NERVOUS SYSTEM [None]
